FAERS Safety Report 6416998-6 (Version None)
Quarter: 2009Q4

REPORT INFORMATION
  Report Type: 
  Country: None (occurrence: None)
  Receive Date: 20091027
  Receipt Date: 20090828
  Transmission Date: 20100525
  Serious: No
  Sender: FDA-Public Use
  Company Number: US-ALLERGAN-0912570US

PATIENT
  Age: 84 Year
  Sex: Male

DRUGS (4)
  1. ALPHAGAN P [Suspect]
     Indication: GLAUCOMA
     Dosage: UNK
     Route: 047
  2. LISINOPRIL [Concomitant]
  3. PRAVASTATIN [Concomitant]
  4. ZETIA [Concomitant]

REACTIONS (2)
  - EYE IRRITATION [None]
  - INTRAOCULAR PRESSURE INCREASED [None]
